FAERS Safety Report 6643134-3 (Version None)
Quarter: 2010Q1

REPORT INFORMATION
  Report Type: 
  Country: None (occurrence: None)
  Receive Date: 20100319
  Receipt Date: 20100309
  Transmission Date: 20100710
  Serious: Yes (Other)
  Sender: FDA-Public Use
  Company Number: PHHY2010CA13925

PATIENT
  Sex: Female

DRUGS (8)
  1. LESCOL [Suspect]
     Dosage: UNK
     Dates: start: 20100301
  2. DIGOXIN [Concomitant]
  3. DILTIAZEM HCL [Concomitant]
  4. COUMADIN [Concomitant]
     Dosage: UNK
  5. ATENOLOL [Concomitant]
  6. HYDROCHLOROTHIAZIDE [Concomitant]
  7. VITAMIN D [Concomitant]
  8. SYNTHROID [Concomitant]

REACTIONS (2)
  - OEDEMA PERIPHERAL [None]
  - PAIN IN EXTREMITY [None]
